FAERS Safety Report 8611307-6 (Version None)
Quarter: 2012Q3

REPORT INFORMATION
  Report Type: 
  Country: None (occurrence: None)
  Receive Date: 20120822
  Receipt Date: 20120820
  Transmission Date: 20120928
  Serious: Yes (Hospitalization)
  Sender: FDA-Public Use
  Company Number: US-PFIZER INC-2012204042

PATIENT
  Sex: Male

DRUGS (1)
  1. TIKOSYN [Suspect]
     Dosage: UNK

REACTIONS (13)
  - HEART VALVE STENOSIS [None]
  - HYPERTHYROIDISM [None]
  - MUSCULOSKELETAL DISORDER [None]
  - SMALL INTESTINAL OBSTRUCTION [None]
  - ATRIAL FIBRILLATION [None]
  - GASTRIC DISORDER [None]
  - HYPERCHOLESTEROLAEMIA [None]
  - ARTERIAL STENOSIS [None]
  - PNEUMONIA STAPHYLOCOCCAL [None]
  - CORONARY ARTERY DISEASE [None]
  - MYOCARDIAL INFARCTION [None]
  - CHRONIC OBSTRUCTIVE PULMONARY DISEASE [None]
  - PROSTATE CANCER [None]
